FAERS Safety Report 9641713 (Version 4)
Quarter: 2014Q3

REPORT INFORMATION
  Report Type: Spontaneous
  Country: US (occurrence: US)
  Receive Date: 20131023
  Receipt Date: 20140801
  Transmission Date: 20150326
  Serious: Yes (Hospitalization, Disabling, Other)
  Sender: FDA-Public Use
  Company Number: US-009507513-1310USA006766

PATIENT
  Sex: Female

DRUGS (6)
  1. HORMONES (UNSPECIFIED) [Concomitant]
     Active Substance: UNSPECIFIED INGREDIENT
     Dosage: UNK
     Dates: start: 199101, end: 200101
  2. FOSAMAX [Suspect]
     Active Substance: ALENDRONATE SODIUM
     Indication: OSTEOPENIA
     Dosage: 10 MG, QD
     Route: 048
     Dates: start: 199710, end: 200305
  3. FOSAMAX [Suspect]
     Active Substance: ALENDRONATE SODIUM
     Dosage: 70 MG, QW
     Route: 048
     Dates: start: 20020607, end: 200305
  4. ACTONEL [Suspect]
     Active Substance: RISEDRONATE SODIUM
     Indication: OSTEOPENIA
     Dosage: 35 MG, UNK
     Dates: start: 200305, end: 200707
  5. BONIVA [Suspect]
     Active Substance: IBANDRONATE SODIUM
     Indication: OSTEOPENIA
     Dosage: 150 MG, UNK
     Dates: start: 200708, end: 200803
  6. ALENDRONATE SODIUM. [Suspect]
     Active Substance: ALENDRONATE SODIUM
     Indication: OSTEOPENIA
     Dosage: 70 MG, UNK
     Dates: start: 200803, end: 201102

REACTIONS (24)
  - Rotator cuff repair [Unknown]
  - Foot fracture [Unknown]
  - Vitamin D deficiency [Unknown]
  - Limb operation [Unknown]
  - Femur fracture [Not Recovered/Not Resolved]
  - Femur fracture [Not Recovered/Not Resolved]
  - Medical device removal [Unknown]
  - Stress fracture [Unknown]
  - Hyperparathyroidism [Unknown]
  - Eye operation [Unknown]
  - Drug ineffective [Unknown]
  - Back pain [Not Recovered/Not Resolved]
  - Macular degeneration [Unknown]
  - Rotator cuff repair [Unknown]
  - Osteoporosis [Unknown]
  - Foot fracture [Unknown]
  - Rib fracture [Unknown]
  - Intervertebral disc protrusion [Unknown]
  - Arthralgia [Not Recovered/Not Resolved]
  - Fracture nonunion [Unknown]
  - Hypothyroidism [Unknown]
  - Intramedullary rod insertion [Unknown]
  - Pneumothorax [Unknown]
  - Fracture delayed union [Unknown]

NARRATIVE: CASE EVENT DATE: 19971001
